FAERS Safety Report 21986236 (Version 3)
Quarter: 2023Q1

REPORT INFORMATION
  Report Type: Spontaneous
  Country: ES (occurrence: ES)
  Receive Date: 20230213
  Receipt Date: 20230223
  Transmission Date: 20230418
  Serious: Yes (Other)
  Sender: FDA-Public Use
  Company Number: ES-BAYER-2023P001238

PATIENT
  Age: 66 Year
  Sex: Male

DRUGS (1)
  1. SORAFENIB [Suspect]
     Active Substance: SORAFENIB
     Indication: Hepatocellular carcinoma
     Dosage: 400 MILLIGRAM, QD,(200 MG, BID)
     Route: 065

REACTIONS (14)
  - Cutaneous vasculitis [Unknown]
  - Dermatitis bullous [Unknown]
  - Dermatitis allergic [Unknown]
  - Skin disorder [Unknown]
  - Necrosis [Unknown]
  - Portal hypertension [Unknown]
  - Chronic hepatitis B [Unknown]
  - Hepatic cirrhosis [Unknown]
  - Erythema [Unknown]
  - Palmar-plantar erythrodysaesthesia syndrome [Unknown]
  - Fatigue [Unknown]
  - Blister [Unknown]
  - Asthenia [Unknown]
  - Off label use [Unknown]
